FAERS Safety Report 10612042 (Version 1)
Quarter: 2014Q4

REPORT INFORMATION
  Report Type: Report from Study
  Country: NL (occurrence: NL)
  Receive Date: 20141126
  Receipt Date: 20141126
  Transmission Date: 20150529
  Serious: Yes (Other)
  Sender: FDA-Public Use
  Company Number: NL-AMGEN-NLDSL2013094584

PATIENT
  Age: 74 Year
  Sex: Male

DRUGS (2)
  1. LUCRIN [Concomitant]
     Active Substance: LEUPROLIDE ACETATE
     Dosage: UNK
  2. XGEVA [Suspect]
     Active Substance: DENOSUMAB
     Indication: PRODUCT USED FOR UNKNOWN INDICATION
     Dosage: 1.7 ML (70MG/ML), Q4WK
     Route: 065
     Dates: start: 20120829

REACTIONS (7)
  - Hyperhidrosis [Unknown]
  - Emotional disorder [Unknown]
  - General physical health deterioration [Unknown]
  - Hot flush [Unknown]
  - Mental impairment [Unknown]
  - Memory impairment [Unknown]
  - Ill-defined disorder [Unknown]
